FAERS Safety Report 8011349-8 (Version None)
Quarter: 2011Q4

REPORT INFORMATION
  Report Type: 
  Country: None (occurrence: None)
  Receive Date: 20111228
  Receipt Date: 20111220
  Transmission Date: 20120403
  Serious: Yes (Other)
  Sender: FDA-Public Use
  Company Number: GB-JNJFOC-20111200199

PATIENT
  Sex: Male

DRUGS (2)
  1. IBUPROFEN [Suspect]
     Indication: TONSILLITIS
     Route: 048
     Dates: start: 20110401
  2. PHENOXYMETHYL PENICILLIN [Suspect]
     Indication: TONSILLITIS
     Route: 065
     Dates: start: 20110401

REACTIONS (8)
  - MUSCULOSKELETAL DISCOMFORT [None]
  - TUNNEL VISION [None]
  - DISTURBANCE IN ATTENTION [None]
  - HYPERCHLORHYDRIA [None]
  - HEART RATE INCREASED [None]
  - MUSCULAR WEAKNESS [None]
  - NAUSEA [None]
  - FEELING ABNORMAL [None]
